FAERS Safety Report 16787617 (Version 1)
Quarter: 2019Q4

REPORT INFORMATION
  Report Type: Spontaneous
  Country: US (occurrence: US)
  Receive Date: 20190909
  Receipt Date: 20190909
  Transmission Date: 20200122
  Serious: Yes (Hospitalization)
  Sender: FDA-Public Use
  Company Number: None

PATIENT
  Age: 55 Year
  Sex: Female

DRUGS (3)
  1. HUMIRA [Suspect]
     Active Substance: ADALIMUMAB
     Dosage: ?          OTHER FREQUENCY:EVERY OTHER WEEK;?
     Route: 058
     Dates: start: 20190515
  2. CEPHALEXIN 500MG [Concomitant]
     Active Substance: CEPHALEXIN
     Dates: start: 20190830
  3. NOVOLOG [Concomitant]
     Active Substance: INSULIN ASPART
     Dates: start: 20190501

REACTIONS (3)
  - Therapy cessation [None]
  - Fall [None]
  - Upper limb fracture [None]

NARRATIVE: CASE EVENT DATE: 20190906
